FAERS Safety Report 8036510-8 (Version None)
Quarter: 2012Q1

REPORT INFORMATION
  Report Type: 
  Country: None (occurrence: None)
  Receive Date: 20120111
  Receipt Date: 20120103
  Transmission Date: 20120608
  Serious: Yes (Hospitalization)
  Sender: FDA-Public Use
  Company Number: US-BAYER-2011-046237

PATIENT
  Age: 21 Year
  Sex: Female
  Weight: 68.027 kg

DRUGS (2)
  1. MOTRIN [Concomitant]
     Dosage: 800 MG, UNK
     Route: 048
     Dates: start: 20091212
  2. YASMIN [Suspect]
     Indication: MENSTRUATION IRREGULAR
     Dosage: UNK
     Dates: start: 20070101, end: 20090101

REACTIONS (2)
  - PAIN IN EXTREMITY [None]
  - DEEP VEIN THROMBOSIS [None]
